FAERS Safety Report 13240435 (Version 2)
Quarter: 2017Q2

REPORT INFORMATION
  Report Type: Spontaneous
  Country: US (occurrence: US)
  Receive Date: 20170216
  Receipt Date: 20170606
  Transmission Date: 20170830
  Serious: Yes (Other)
  Sender: FDA-Public Use
  Company Number: US-JNJFOC-20170213780

PATIENT
  Age: 73 Year
  Sex: Male

DRUGS (17)
  1. HYDROCODONE/ACETAMINOPHEN [Concomitant]
     Active Substance: ACETAMINOPHEN\HYDROCODONE
  2. LOVASTATIN. [Concomitant]
     Active Substance: LOVASTATIN
  3. IMBRUVICA [Suspect]
     Active Substance: IBRUTINIB
     Indication: MANTLE CELL LYMPHOMA STAGE IV
     Route: 048
     Dates: start: 20170222
  4. LEVOTHYROXINE. [Concomitant]
     Active Substance: LEVOTHYROXINE
  5. AZITHROMYCIN ANHYDROUS. [Concomitant]
     Active Substance: AZITHROMYCIN ANHYDROUS
  6. BENICAR [Concomitant]
     Active Substance: OLMESARTAN MEDOXOMIL
  7. ZOFRAN [Concomitant]
     Active Substance: ONDANSETRON HYDROCHLORIDE
  8. CLONIDINE HCL [Concomitant]
     Active Substance: CLONIDINE HYDROCHLORIDE
  9. ACYCLOVIR. [Concomitant]
     Active Substance: ACYCLOVIR
     Route: 061
  10. HYDROCHLOROTHIAZIDE. [Concomitant]
     Active Substance: HYDROCHLOROTHIAZIDE
  11. METOPROLOL TARTRATE. [Concomitant]
     Active Substance: METOPROLOL TARTRATE
  12. PROMETHAZINE [Concomitant]
     Active Substance: PROMETHAZINE\PROMETHAZINE HYDROCHLORIDE
  13. VITAMIN D3 [Concomitant]
     Active Substance: CHOLECALCIFEROL
     Dosage: 5000 UNITS
  14. IMBRUVICA [Suspect]
     Active Substance: IBRUTINIB
     Indication: MANTLE CELL LYMPHOMA STAGE IV
     Route: 048
     Dates: start: 201705
  15. AMLODIPINE [Concomitant]
     Active Substance: AMLODIPINE BESYLATE
  16. DIGOXIN. [Concomitant]
     Active Substance: DIGOXIN
  17. IMBRUVICA [Suspect]
     Active Substance: IBRUTINIB
     Indication: MANTLE CELL LYMPHOMA STAGE IV
     Route: 048
     Dates: start: 201506, end: 20160617

REACTIONS (16)
  - Hypovolaemia [Unknown]
  - Benign neoplasm of thyroid gland [Unknown]
  - Basal cell carcinoma [Unknown]
  - Thrombocytopenia [Unknown]
  - Tachycardia [Unknown]
  - Bronchitis [Unknown]
  - Orthostatic hypotension [Unknown]
  - Cough [Unknown]
  - Blood pressure fluctuation [Recovered/Resolved]
  - Ascites [Unknown]
  - Renal failure [Unknown]
  - Chest injury [Unknown]
  - Dizziness [Unknown]
  - Leukocytosis [Unknown]
  - Abdominal pain upper [Recovered/Resolved]
  - Disease progression [Unknown]

NARRATIVE: CASE EVENT DATE: 20150904
